FAERS Safety Report 8017519-7 (Version None)
Quarter: 2011Q4

REPORT INFORMATION
  Report Type: 
  Country: None (occurrence: None)
  Receive Date: 20111228
  Receipt Date: 20111228
  Transmission Date: 20120403
  Serious: Yes (Other)
  Sender: FDA-Public Use
  Company Number: None

PATIENT
  Sex: Male
  Weight: 90.7194 kg

DRUGS (1)
  1. DIVALPROEX SODIUM EXTENDED RELEASE [Suspect]
     Indication: HEADACHE
     Dosage: 250 MG 2X DAILEY
     Dates: start: 20110901, end: 20111101

REACTIONS (1)
  - SUICIDE ATTEMPT [None]
